FAERS Safety Report 9540850 (Version 6)
Quarter: 2014Q2

REPORT INFORMATION
  Report Type: Report from Study
  Country: IT (occurrence: IT)
  Receive Date: 20130920
  Receipt Date: 20140408
  Transmission Date: 20141212
  Serious: Yes (Hospitalization)
  Sender: FDA-Public Use
  Company Number: IT-BAYER-2013-113165

PATIENT
  Age: 78 Year
  Sex: Male
  Weight: 63 kg

DRUGS (5)
  1. REGORAFENIB [Suspect]
     Indication: COLORECTAL CANCER
     Dosage: 160 MG DAILY
     Dates: start: 20130821, end: 20130830
  2. REGORAFENIB [Suspect]
     Indication: COLORECTAL CANCER
     Dosage: 160 MG, QD
     Route: 048
     Dates: start: 20130822, end: 20130830
  3. REGORAFENIB [Suspect]
     Indication: COLORECTAL CANCER
     Dosage: UNK
     Route: 048
     Dates: start: 2013, end: 20131029
  4. CARDIOASPIRIN [Concomitant]
     Indication: THROMBOSIS PROPHYLAXIS
     Dosage: UNK
     Route: 048
  5. LOPRESOR [Concomitant]
     Indication: HYPERTENSION
     Dosage: 50MG
     Route: 048

REACTIONS (5)
  - Pyrexia [None]
  - Bronchopneumonia [None]
  - Pleural effusion [None]
  - Ischaemic stroke [None]
  - Chronic obstructive pulmonary disease [Recovered/Resolved]
